FAERS Safety Report 6326450-4 (Version None)
Quarter: 2009Q3

REPORT INFORMATION
  Report Type: 
  Country: None (occurrence: None)
  Receive Date: 20090825
  Receipt Date: 20070530
  Transmission Date: 20100115
  Serious: Yes (Hospitalization)
  Sender: FDA-Public Use
  Company Number: US-ASTRAZENECA-2006UW27451

PATIENT
  Age: 64 Year
  Sex: Male
  Weight: 109.8 kg

DRUGS (18)
  1. SEROQUEL [Suspect]
     Indication: DEPRESSION
     Route: 048
     Dates: start: 20030901, end: 20060901
  2. SEROQUEL [Suspect]
     Indication: ANXIETY
     Route: 048
     Dates: start: 20030901, end: 20060901
  3. SEROQUEL [Suspect]
     Indication: ANGER
     Route: 048
     Dates: start: 20030901, end: 20060901
  4. SEROQUEL [Suspect]
     Route: 048
     Dates: start: 20030904
  5. SEROQUEL [Suspect]
     Route: 048
     Dates: start: 20030904
  6. SEROQUEL [Suspect]
     Route: 048
     Dates: start: 20030904
  7. WELLBUTRIN [Concomitant]
     Indication: MENTAL DISORDER
     Dates: start: 20030101
  8. LOPRESSOR [Concomitant]
     Dosage: 50 MG TO 100 MG
     Dates: start: 19951103
  9. VASOTEC [Concomitant]
     Dates: start: 19960127
  10. ASPIRIN [Concomitant]
     Dosage: 81 MG TO 325 MG
     Dates: start: 19951103
  11. WELLBUTRIN SR [Concomitant]
     Dosage: 100 MG TO 300 MG
     Dates: start: 19990101
  12. REMERON [Concomitant]
     Dates: start: 20030710
  13. ZOLOFT [Concomitant]
     Dates: start: 20030710
  14. TEMAZEPAM [Concomitant]
     Dosage: 15 MG 1 OR 2 AT H.S
     Dates: start: 20010115
  15. VIOXX [Concomitant]
     Dates: start: 20010115
  16. DARVOCET-N 100 [Concomitant]
     Dosage: 100 1 EVERY 4 HOURS PM
     Dates: start: 20010115
  17. LIPITOR [Concomitant]
     Indication: BLOOD CHOLESTEROL
     Dates: start: 19980101
  18. NAPROSYN [Concomitant]
     Dates: start: 19970716

REACTIONS (6)
  - ACUTE MYOCARDIAL INFARCTION [None]
  - CARDIAC FAILURE CONGESTIVE [None]
  - DIABETES MELLITUS [None]
  - DIABETES MELLITUS INADEQUATE CONTROL [None]
  - MYOCARDIAL INFARCTION [None]
  - TYPE 1 DIABETES MELLITUS [None]
